FAERS Safety Report 6078301-3 (Version None)
Quarter: 2009Q1

REPORT INFORMATION
  Report Type: 
  Country: None (occurrence: None)
  Receive Date: 20090213
  Receipt Date: 20060713
  Transmission Date: 20090719
  Serious: Yes (Hospitalization, Other)
  Sender: FDA-Public Use
  Company Number: KR-BAXTER-2006BH011795

PATIENT
  Age: 46 Year
  Sex: Male

DRUGS (3)
  1. METRONIDAZOLE INJECTION RTU IN VIAFLEX PLUS CONTAINER [Suspect]
     Indication: CHOLANGITIS ACUTE
     Route: 042
  2. METRONIDAZOLE INJECTION RTU IN VIAFLEX PLUS CONTAINER [Suspect]
     Indication: ENCEPHALOPATHY
     Route: 042
  3. CEFOTAXIME [Concomitant]
     Indication: CHOLANGITIS ACUTE
     Route: 042

REACTIONS (2)
  - COMA [None]
  - TOXIC ENCEPHALOPATHY [None]
